FAERS Safety Report 10401197 (Version 1)
Quarter: 2014Q3

REPORT INFORMATION
  Report Type: Spontaneous
  Country: US (occurrence: US)
  Receive Date: 20140822
  Receipt Date: 20140822
  Transmission Date: 20150326
  Serious: Yes (Death, Hospitalization)
  Sender: FDA-Public Use
  Company Number: US-B.I. PHARMACEUTICALS,INC./RIDGEFIELD-2014-BI-38481BP

PATIENT
  Age: 88 Year
  Sex: Female

DRUGS (9)
  1. LEVOXYL [Concomitant]
     Active Substance: LEVOTHYROXINE SODIUM
     Route: 065
  2. ARICEPT [Concomitant]
     Active Substance: DONEPEZIL HYDROCHLORIDE
     Route: 065
  3. CELEXA [Concomitant]
     Active Substance: CITALOPRAM HYDROBROMIDE
     Route: 065
  4. PRADAXA [Suspect]
     Active Substance: DABIGATRAN ETEXILATE MESYLATE
     Indication: PRODUCT USED FOR UNKNOWN INDICATION
     Route: 065
  5. AVANDIA [Concomitant]
     Active Substance: ROSIGLITAZONE MALEATE
     Route: 065
  6. TRAVATAN [Concomitant]
     Active Substance: TRAVOPROST
     Route: 065
  7. HYDRALAZINE [Concomitant]
     Active Substance: HYDRALAZINE HYDROCHLORIDE
     Route: 065
  8. POTASSIUM [Concomitant]
     Active Substance: POTASSIUM
     Route: 065
  9. DEXILANT [Concomitant]
     Active Substance: DEXLANSOPRAZOLE
     Route: 065

REACTIONS (5)
  - Hypercoagulation [Unknown]
  - Sepsis [Fatal]
  - Gastrointestinal haemorrhage [Unknown]
  - Hypotension [Unknown]
  - Peritonitis bacterial [Fatal]

NARRATIVE: CASE EVENT DATE: 20110228
